FAERS Safety Report 8987614 (Version 2)
Quarter: 2013Q4

REPORT INFORMATION
  Report Type: Spontaneous
  Country: GB (occurrence: GB)
  Receive Date: 20121227
  Receipt Date: 20131010
  Transmission Date: 20140711
  Serious: Yes (Hospitalization)
  Sender: FDA-Public Use
  Company Number: GB-WATSON-2012-22554

PATIENT
  Age: 84 Year
  Sex: Female

DRUGS (5)
  1. AMLODIPINE (UNKNOWN) [Suspect]
     Indication: BLOOD PRESSURE
     Dosage: 5 MG, DAILY
     Route: 065
  2. LISINOPRIL (UNKNOWN) [Suspect]
     Indication: BLOOD PRESSURE
     Dosage: 10 MG, DAILY
     Route: 065
  3. FOLIC ACID [Concomitant]
     Indication: MUSCLE SPASMS
     Dosage: UNKNOWN
     Route: 065
  4. GALFER [Concomitant]
     Indication: MINERAL SUPPLEMENTATION
     Dosage: UNKNOWN
     Route: 065
  5. BISOPROLOL FUMARATE [Concomitant]
     Indication: PRODUCT USED FOR UNKNOWN INDICATION
     Dosage: UNK
     Route: 065

REACTIONS (4)
  - Hypertension [Unknown]
  - Drug ineffective [Unknown]
  - Muscle spasms [Unknown]
  - Muscle spasms [Unknown]
